FAERS Safety Report 5308561-5 (Version None)
Quarter: 2007Q2

REPORT INFORMATION
  Report Type: 
  Country: None (occurrence: None)
  Receive Date: 20070423
  Receipt Date: 20070423
  Transmission Date: 20071010
  Serious: Yes (Other)
  Sender: FDA-Public Use
  Company Number: None

PATIENT
  Sex: Female
  Weight: 56.6996 kg

DRUGS (1)
  1. METOCLOPRAMIDE [Suspect]
     Indication: PROCEDURAL NAUSEA
     Dosage: IV
     Route: 042
     Dates: start: 20070420, end: 20070421

REACTIONS (2)
  - OCULOGYRATION [None]
  - TORTICOLLIS [None]
